FAERS Safety Report 7829129-2 (Version None)
Quarter: 2011Q4

REPORT INFORMATION
  Report Type: 
  Country: None (occurrence: None)
  Receive Date: 20111020
  Receipt Date: 20111011
  Transmission Date: 20120403
  Serious: Yes (Other)
  Sender: FDA-Public Use
  Company Number: PHHY2011BR91066

PATIENT
  Age: 81 Year
  Sex: Male

DRUGS (2)
  1. EXFORGE HCT [Suspect]
     Indication: HYPERTENSION
  2. OCUVITE LUTEIN [Concomitant]
     Dosage: UNK

REACTIONS (1)
  - MACULAR DEGENERATION [None]
